FAERS Safety Report 5300424-4 (Version None)
Quarter: 2007Q2

REPORT INFORMATION
  Report Type: 
  Country: None (occurrence: None)
  Receive Date: 20070411
  Receipt Date: 20070329
  Transmission Date: 20071010
  Serious: Yes (Other)
  Sender: FDA-Public Use
  Company Number: 2007SP006257

PATIENT
  Age: 66 Year
  Sex: Male

DRUGS (2)
  1. PEG-INTRON [Suspect]
     Indication: HEPATITIS C
     Dosage: 1 MCG/KG; QW;
  2. REBETOL [Suspect]
     Indication: HEPATITIS C
     Dosage: QD

REACTIONS (5)
  - AUTOIMMUNE HEPATITIS [None]
  - BILIARY CIRRHOSIS PRIMARY [None]
  - COMPLICATIONS OF TRANSPLANTED LIVER [None]
  - NO THERAPEUTIC RESPONSE [None]
  - TRANSPLANT FAILURE [None]
